FAERS Safety Report 19168136 (Version 8)
Quarter: 2021Q4

REPORT INFORMATION
  Report Type: Other
  Country: CA (occurrence: None)
  Receive Date: 20210422
  Receipt Date: 20211208
  Transmission Date: 20220303
  Serious: Yes (Other)
  Sender: FDA-Public Use
  Company Number: CA-ROCHE-2273623

PATIENT
  Sex: Male

DRUGS (8)
  1. OCREVUS [Suspect]
     Active Substance: OCRELIZUMAB
     Indication: Relapsing-remitting multiple sclerosis
     Dosage: 300 MG AT DAY 0 AND 14, THEN 600 MG EVERY 6 MONTH
     Route: 042
     Dates: start: 20180830
  2. CELEBREX [Concomitant]
     Active Substance: CELECOXIB
  3. HYDROMORPHONE [Concomitant]
     Active Substance: HYDROMORPHONE
  4. LYRICA [Concomitant]
     Active Substance: PREGABALIN
  5. ASPIRIN [Concomitant]
     Active Substance: ASPIRIN
  6. TYLENOL [Concomitant]
     Active Substance: ACETAMINOPHEN
  7. PFIZER-BIONTECH COVID-19 VACCINE [Concomitant]
     Active Substance: TOZINAMERAN
     Dates: start: 20210805
  8. PFIZER-BIONTECH COVID-19 VACCINE [Concomitant]
     Active Substance: TOZINAMERAN
     Dates: start: 20210916

REACTIONS (9)
  - Multiple sclerosis relapse [Unknown]
  - Fatigue [Not Recovered/Not Resolved]
  - General physical health deterioration [Unknown]
  - Oral herpes [Not Recovered/Not Resolved]
  - Herpes zoster [Recovering/Resolving]
  - Blister [Not Recovered/Not Resolved]
  - Multiple sclerosis [Recovered/Resolved]
  - Pruritus [Recovered/Resolved]
  - Skin irritation [Not Recovered/Not Resolved]
